FAERS Safety Report 5477068-7 (Version None)
Quarter: 2007Q4

REPORT INFORMATION
  Report Type: 
  Country: None (occurrence: None)
  Receive Date: 20071002
  Receipt Date: 20071002
  Transmission Date: 20080405
  Serious: Yes (Life-Threatening, Hospitalization)
  Sender: FDA-Public Use
  Company Number: None

PATIENT
  Age: 68 Year
  Sex: Male
  Weight: 111 kg

DRUGS (9)
  1. WARFARIN SODIUM [Suspect]
     Indication: ATRIAL FIBRILLATION
     Dosage: 2.5MG DAILY ORALLY
     Route: 048
     Dates: start: 20070823
  2. ASPIRIN [Concomitant]
  3. METOPROLOL TARTRATE [Concomitant]
  4. REGLAN [Concomitant]
  5. FUROSEMIDE [Concomitant]
  6. K-DUR 10 [Concomitant]
  7. AMIODARONE [Concomitant]
  8. METAMUCIL [Concomitant]
  9. TYLENOL (CAPLET) [Concomitant]

REACTIONS (2)
  - PERICARDIAL EFFUSION [None]
  - UNEVALUABLE EVENT [None]
